FAERS Safety Report 10146110 (Version 1)
Quarter: 2014Q2

REPORT INFORMATION
  Report Type: Spontaneous
  Country: US (occurrence: None)
  Receive Date: 20140430
  Receipt Date: 20140430
  Transmission Date: 20141212
  Serious: Yes (Death)
  Sender: FDA-Public Use
  Company Number: None

PATIENT
  Age: 91 Year
  Sex: Female

DRUGS (2)
  1. ALTEPLASE [Suspect]
     Indication: CEREBROVASCULAR ACCIDENT
     Dosage: 4.6 MG BOLUS + 41.4 MG/HR, ONCE, IV?
     Route: 042
     Dates: start: 20130808, end: 20130808
  2. DABIGATRAN [Concomitant]

REACTIONS (2)
  - Cerebral haematoma [None]
  - Basal ganglia infarction [None]
